FAERS Safety Report 7674635-7 (Version None)
Quarter: 2011Q3

REPORT INFORMATION
  Report Type: 
  Country: None (occurrence: None)
  Receive Date: 20110810
  Receipt Date: 20110808
  Transmission Date: 20111222
  Serious: Yes (Hospitalization)
  Sender: FDA-Public Use
  Company Number: CH-TEVA-295349ISR

PATIENT
  Sex: Female

DRUGS (6)
  1. METFORMIN HCL [Suspect]
     Dosage: 500 MILLIGRAM;
     Route: 048
  2. GABAPENTIN [Concomitant]
  3. SITAGLIPTIN [Concomitant]
  4. OLMESARTAN MEDOXOMIL [Concomitant]
  5. CLOPIDOGREL [Concomitant]
  6. METOPROLOL TARTRATE [Concomitant]

REACTIONS (1)
  - FAECAL INCONTINENCE [None]
